FAERS Safety Report 14347391 (Version 1)
Quarter: 2018Q1

REPORT INFORMATION
  Report Type: Spontaneous
  Country: US (occurrence: US)
  Receive Date: 20180102
  Receipt Date: 20180102
  Transmission Date: 20180509
  Serious: Yes (Other)
  Sender: FDA-Public Use
  Company Number: None

PATIENT
  Age: 66 Year
  Sex: Female
  Weight: 111.6 kg

DRUGS (1)
  1. METOPROPROLOL ER SUCCINATE [Suspect]
     Active Substance: METOPROLOL SUCCINATE

REACTIONS (5)
  - Heart rate increased [None]
  - Product substitution issue [None]
  - Hypertension [None]
  - Myocardial infarction [None]
  - Feeling abnormal [None]
